FAERS Safety Report 7130268-2 (Version None)
Quarter: 2010Q4

REPORT INFORMATION
  Report Type: 
  Country: None (occurrence: None)
  Receive Date: 20101201
  Receipt Date: 20101122
  Transmission Date: 20110411
  Serious: Yes (Death, Life-Threatening)
  Sender: FDA-Public Use
  Company Number: PL-ELI_LILLY_AND_COMPANY-PL201011005767

PATIENT
  Sex: Female
  Weight: 63 kg

DRUGS (8)
  1. NECITUMUMAB (11F8) (LY3012211) [Suspect]
     Indication: NON-SMALL CELL LUNG CANCER
     Dosage: 800 MG, UNK
     Dates: start: 20101108
  2. GEMCITABINE HYDROCHLORIDE [Suspect]
     Indication: NON-SMALL CELL LUNG CANCER
     Dosage: 2125 MG, UNK
     Dates: start: 20101108
  3. CISPLATIN [Suspect]
     Indication: NON-SMALL CELL LUNG CANCER
     Dosage: 128 MG, UNK
     Dates: start: 20101108
  4. MORPHINE [Concomitant]
     Dates: start: 20101115
  5. FUROSEMID [Concomitant]
     Dates: start: 20101116
  6. NEUPOGEN [Concomitant]
     Dates: start: 20101115
  7. LEVONOR [Concomitant]
     Dates: start: 20101115
  8. CYCLONAMINE [Concomitant]
     Dates: start: 20101115

REACTIONS (1)
  - AGRANULOCYTOSIS [None]
